FAERS Safety Report 18735611 (Version 2)
Quarter: 2021Q1

REPORT INFORMATION
  Report Type: Other
  Country: JP (occurrence: JP)
  Receive Date: 20210113
  Receipt Date: 20210116
  Transmission Date: 20210419
  Serious: Yes (Hospitalization, Other)
  Sender: FDA-Public Use
  Company Number: JP-ROCHE-2748109

PATIENT
  Age: 84 Year
  Sex: Female

DRUGS (5)
  1. OXALIPLATIN. [Concomitant]
     Active Substance: OXALIPLATIN
     Indication: COLON CANCER
     Dosage: UNCERTAIN DOSAGE AND EIGHT COURSES
     Route: 041
  2. AVASTIN [Suspect]
     Active Substance: BEVACIZUMAB
     Dosage: UNCERTAIN DOSAGE AND TEN COURSES
     Route: 041
  3. XELODA [Suspect]
     Active Substance: CAPECITABINE
     Indication: COLON CANCER
     Dosage: UNCERTAIN DOSAGE AND EIGHT COURSES
     Route: 048
  4. XELODA [Suspect]
     Active Substance: CAPECITABINE
     Dosage: UNCERTAIN DOSAGE AND TEN COURSES
     Route: 048
  5. AVASTIN [Suspect]
     Active Substance: BEVACIZUMAB
     Indication: COLON CANCER
     Dosage: UNCERTAIN DOSAGE AND EIGHT COURSES
     Route: 041

REACTIONS (3)
  - Subarachnoid haemorrhage [Recovered/Resolved with Sequelae]
  - Metastases to biliary tract [Unknown]
  - Off label use [Unknown]
